FAERS Safety Report 4351567-3 (Version None)
Quarter: 2004Q2

REPORT INFORMATION
  Report Type: 
  Country: None (occurrence: None)
  Receive Date: 20040429
  Receipt Date: 20040317
  Transmission Date: 20050107
  Serious: No
  Sender: FDA-Public Use
  Company Number: 2004-114492-NL

PATIENT
  Age: 16 Year
  Sex: Female
  Weight: 66.5 kg

DRUGS (7)
  1. NUVARING [Suspect]
     Indication: ENDOMETRIOSIS
     Dosage: DF DAILY VAGINAL
     Route: 067
     Dates: start: 20030901
  2. PROGRAF [Concomitant]
  3. CARBATROL [Concomitant]
  4. PROCARDIA XL [Concomitant]
  5. PENICILLIN VK [Concomitant]
  6. PAXIL [Concomitant]
  7. BACTRIM [Concomitant]

REACTIONS (1)
  - ALOPECIA [None]
